FAERS Safety Report 10229006 (Version 1)
Quarter: 2014Q2

REPORT INFORMATION
  Report Type: Spontaneous
  Country: US (occurrence: US)
  Receive Date: 20140610
  Receipt Date: 20140610
  Transmission Date: 20141212
  Serious: No
  Sender: FDA-Public Use
  Company Number: US-009507513-1406USA004325

PATIENT
  Age: 52 Year
  Sex: Female

DRUGS (1)
  1. HEXADROL TABLETS [Suspect]
     Indication: CEREBRAL CYST
     Route: 048

REACTIONS (2)
  - No therapeutic response [Recovered/Resolved]
  - Drug ineffective [Recovered/Resolved]
